FAERS Safety Report 8322245-0 (Version None)
Quarter: 2012Q2

REPORT INFORMATION
  Report Type: 
  Country: None (occurrence: None)
  Receive Date: 20120430
  Receipt Date: 20120420
  Transmission Date: 20120825
  Serious: Yes (Other)
  Sender: FDA-Public Use
  Company Number: CA-JNJFOC-20120409961

PATIENT
  Sex: Female
  Weight: 88.6 kg

DRUGS (3)
  1. IMURAN [Concomitant]
     Route: 048
  2. REMICADE [Suspect]
     Indication: COLITIS ULCERATIVE
     Route: 042
     Dates: start: 20120113
  3. EMTEC 30 [Concomitant]
     Route: 065

REACTIONS (2)
  - ARRHYTHMIA [None]
  - PALPITATIONS [None]
